FAERS Safety Report 4909342-4 (Version None)
Quarter: 2006Q1

REPORT INFORMATION
  Report Type: 
  Country: None (occurrence: None)
  Receive Date: 20060213
  Receipt Date: 20040401
  Transmission Date: 20060701
  Serious: Yes (Other)
  Sender: FDA-Public Use
  Company Number: JP-GLAXOSMITHKLINE-B0329447A

PATIENT
  Age: 41 Year
  Sex: Male

DRUGS (16)
  1. EPIVIR [Suspect]
     Dosage: 150MG TWICE PER DAY
     Route: 048
  2. ZERIT [Suspect]
     Dosage: 40MG TWICE PER DAY
     Route: 048
  3. CODEINE PHOSPHATE [Suspect]
     Dosage: 60MG PER DAY
     Route: 048
  4. LOPEMIN [Suspect]
     Dosage: 3CAP PER DAY
     Route: 048
  5. MEVALOTIN [Suspect]
     Dosage: 10MG TWICE PER DAY
     Route: 048
  6. OMEPRAL [Suspect]
     Dosage: 20MG PER DAY
     Route: 065
  7. STOCRIN [Suspect]
     Dosage: 4CAP PER DAY
     Route: 048
     Dates: start: 20030501, end: 20030729
  8. STOCRIN [Suspect]
     Dosage: 3CAP PER DAY
     Route: 048
     Dates: start: 20030730
  9. PAXIL [Suspect]
     Route: 048
  10. DESYREL [Suspect]
     Dosage: 25MG THREE TIMES PER DAY
     Route: 048
  11. DEPAS [Suspect]
     Dosage: .5MG THREE TIMES PER DAY
     Route: 048
  12. VEGETAMIN [Suspect]
     Dosage: 4TAB PER DAY
     Route: 048
  13. SILECE [Suspect]
     Route: 065
  14. ALESION [Suspect]
     Dosage: 2TAB PER DAY
     Route: 048
  15. ALLOID G [Suspect]
     Dosage: 1ML FOUR TIMES PER DAY
     Route: 048
  16. VOLTAREN [Suspect]
     Dosage: 1CAP TWICE PER DAY
     Route: 048
     Dates: end: 20030701

REACTIONS (1)
  - URINARY INCONTINENCE [None]
